FAERS Safety Report 8438502-3 (Version None)
Quarter: 2012Q2

REPORT INFORMATION
  Report Type: 
  Country: None (occurrence: None)
  Receive Date: 20120615
  Receipt Date: 20120607
  Transmission Date: 20120825
  Serious: Yes (Hospitalization)
  Sender: FDA-Public Use
  Company Number: US-BIOGENIDEC-2012BI020615

PATIENT
  Age: 39 Year
  Sex: Female

DRUGS (4)
  1. NUVIGIL [Concomitant]
     Indication: FATIGUE
     Route: 048
  2. TYSABRI [Suspect]
     Indication: MULTIPLE SCLEROSIS
     Route: 042
     Dates: start: 20120502
  3. LYRICA [Concomitant]
     Indication: PAIN
     Route: 048
  4. XANAX [Concomitant]
     Indication: GAIT DISTURBANCE
     Dates: start: 19970101

REACTIONS (6)
  - INFUSION SITE EXTRAVASATION [None]
  - EMOTIONAL DISTRESS [None]
  - CATHETER SITE HAEMATOMA [None]
  - PAIN IN EXTREMITY [None]
  - CARDIAC DISORDER [None]
  - MUSCLE TWITCHING [None]
